FAERS Safety Report 8308859-2 (Version None)
Quarter: 2012Q2

REPORT INFORMATION
  Report Type: 
  Country: None (occurrence: None)
  Receive Date: 20120424
  Receipt Date: 20120420
  Transmission Date: 20120825
  Serious: No
  Sender: FDA-Public Use
  Company Number: US-PFIZER INC-2012098541

PATIENT
  Sex: Male

DRUGS (3)
  1. CONCERTA [Concomitant]
     Dosage: UNK
  2. RISPERDAL [Concomitant]
     Dosage: UNK
  3. ZOLOFT [Suspect]
     Indication: DEPRESSION
     Dosage: 25 MG, 1X/DAY
     Route: 048
     Dates: start: 20111001, end: 20120401

REACTIONS (1)
  - TRICHOTILLOMANIA [None]
